FAERS Safety Report 19807450 (Version 1)
Quarter: 2021Q3

REPORT INFORMATION
  Report Type: Spontaneous
  Country: US (occurrence: US)
  Receive Date: 20210908
  Receipt Date: 20210908
  Transmission Date: 20211014
  Serious: Yes (Hospitalization)
  Sender: FDA-Public Use
  Company Number: None

PATIENT
  Age: 64 Year
  Sex: Female
  Weight: 90.72 kg

DRUGS (9)
  1. TRAMADOL 50MG [Concomitant]
     Active Substance: TRAMADOL
  2. CASIRIVIMAB?IMDEVIMAB [Suspect]
     Active Substance: CASIRIVIMAB\IMDEVIMAB
     Indication: COVID-19
     Dosage: ?          OTHER FREQUENCY:X1;?
     Route: 042
  3. LISINOPRIL 10MG [Concomitant]
     Active Substance: LISINOPRIL
  4. MULTIVITAMIN [Concomitant]
     Active Substance: VITAMINS
  5. TRAZODONE [Concomitant]
     Active Substance: TRAZODONE HYDROCHLORIDE
  6. TRIAMTERENE/HCTZ 37.5/25 [Concomitant]
     Active Substance: HYDROCHLOROTHIAZIDE\TRIAMTERENE
  7. ALEVE [Concomitant]
     Active Substance: NAPROXEN SODIUM
  8. CELEXA [Concomitant]
     Active Substance: CITALOPRAM HYDROBROMIDE
  9. FAMCICLOVIR 250MG [Concomitant]

REACTIONS (6)
  - Dizziness [None]
  - Nausea [None]
  - White blood cell count decreased [None]
  - Hyperhidrosis [None]
  - Hypersensitivity [None]
  - Blood pressure increased [None]

NARRATIVE: CASE EVENT DATE: 20210827
